FAERS Safety Report 7893738-5 (Version None)
Quarter: 2011Q4

REPORT INFORMATION
  Report Type: 
  Country: None (occurrence: None)
  Receive Date: 20111104
  Receipt Date: 20111028
  Transmission Date: 20120403
  Serious: Yes (Other)
  Sender: FDA-Public Use
  Company Number: PHHY2011JP85181

PATIENT
  Age: 57 Year
  Sex: Male

DRUGS (1)
  1. PACLITAXEL [Suspect]
     Indication: LUNG CANCER METASTATIC
     Dosage: 100 MG/KG, QW

REACTIONS (10)
  - BLOOD PRESSURE DECREASED [None]
  - PLEURAL EFFUSION [None]
  - PYREXIA [None]
  - BODY TEMPERATURE DECREASED [None]
  - PULMONARY NECROSIS [None]
  - FATIGUE [None]
  - TUMOUR NECROSIS [None]
  - EMPYEMA [None]
  - DYSPNOEA [None]
  - MEDIASTINAL ABSCESS [None]
